FAERS Safety Report 7617462-9 (Version None)
Quarter: 2011Q3

REPORT INFORMATION
  Report Type: 
  Country: None (occurrence: None)
  Receive Date: 20110718
  Receipt Date: 20110716
  Transmission Date: 20111222
  Serious: No
  Sender: FDA-Public Use
  Company Number: US-PFIZER INC-2011161167

PATIENT
  Sex: Female
  Weight: 54.4 kg

DRUGS (1)
  1. DILANTIN [Suspect]
     Indication: POSTOPERATIVE CARE
     Dosage: 300 MG, UNK
     Route: 048
     Dates: start: 20110201

REACTIONS (3)
  - ANXIETY [None]
  - NAUSEA [None]
  - DYSPNOEA [None]
